FAERS Safety Report 23816325 (Version 2)
Quarter: 2024Q2

REPORT INFORMATION
  Report Type: Report from Study
  Country: CO (occurrence: None)
  Receive Date: 20240503
  Receipt Date: 20240516
  Transmission Date: 20240716
  Serious: Yes (Death, Hospitalization, Other)
  Sender: FDA-Public Use
  Company Number: 2024A104997

PATIENT
  Age: 24303 Day
  Sex: Female
  Weight: 54 kg

DRUGS (1)
  1. CALQUENCE [Suspect]
     Active Substance: ACALABRUTINIB
     Route: 048
     Dates: start: 20221017, end: 20240410

REACTIONS (3)
  - General physical health deterioration [Fatal]
  - Pulmonary oedema [Fatal]
  - Disease complication [Fatal]
